FAERS Safety Report 5486437-0 (Version None)
Quarter: 2007Q4

REPORT INFORMATION
  Report Type: 
  Country: None (occurrence: None)
  Receive Date: 20071016
  Receipt Date: 20071012
  Transmission Date: 20080405
  Serious: Yes (Other)
  Sender: FDA-Public Use
  Company Number: A0439047A

PATIENT
  Age: 83 Year
  Sex: Female

DRUGS (4)
  1. FLOVENT [Suspect]
     Indication: ASTHMA
     Dosage: 1PUFF TWICE PER DAY
     Route: 055
     Dates: start: 19970101
  2. NASACORT [Concomitant]
  3. LABETALOL [Concomitant]
  4. ATACAND [Concomitant]

REACTIONS (8)
  - ANAEMIA [None]
  - DERMATITIS CONTACT [None]
  - EPINEPHRINE INCREASED [None]
  - HAEMOGLOBIN DECREASED [None]
  - MALAISE [None]
  - MYALGIA [None]
  - RASH [None]
  - VITAMIN D DECREASED [None]
